FAERS Safety Report 8191278-X (Version None)
Quarter: 2012Q1

REPORT INFORMATION
  Report Type: 
  Country: None (occurrence: None)
  Receive Date: 20120221
  Receipt Date: 20111123
  Transmission Date: 20120608
  Serious: No
  Sender: FDA-Public Use
  Company Number: 046318

PATIENT
  Sex: Female

DRUGS (2)
  1. DEPAKOTE [Concomitant]
  2. LACOSAMIDE [Suspect]
     Dosage: (400 MG ORAL)
     Route: 048
     Dates: start: 20110101

REACTIONS (3)
  - ALOPECIA [None]
  - HAIR TEXTURE ABNORMAL [None]
  - TRICHORRHEXIS [None]
